FAERS Safety Report 15230189 (Version 2)
Quarter: 2019Q3

REPORT INFORMATION
  Report Type: Spontaneous
  Country: US (occurrence: US)
  Receive Date: 20180802
  Receipt Date: 20190805
  Transmission Date: 20191004
  Serious: Yes (Other)
  Sender: FDA-Public Use
  Company Number: US-ACCORD-066873

PATIENT
  Age: 36 Year
  Sex: Female

DRUGS (9)
  1. PARAPLATIN [Suspect]
     Active Substance: CARBOPLATIN
     Indication: BREAST CANCER
     Dosage: AT EVERY 3 WEEKS
     Dates: start: 20150115, end: 20150430
  2. HERCEPTIN [Concomitant]
     Active Substance: TRASTUZUMAB
  3. ONDANSETRON [Concomitant]
     Active Substance: ONDANSETRON
  4. IRON [Concomitant]
     Active Substance: IRON
  5. RIZATRIPTAN. [Concomitant]
     Active Substance: RIZATRIPTAN
  6. PROMETHAZINE [Concomitant]
     Active Substance: PROMETHAZINE HYDROCHLORIDE
  7. DOCETAXEL ACCORD [Suspect]
     Active Substance: DOCETAXEL
     Indication: BREAST CANCER
     Dosage: AT EVERY 3 WEEKS
     Dates: start: 20150115, end: 20150430
  8. DEXAMETHASONE. [Concomitant]
     Active Substance: DEXAMETHASONE
  9. TOPIRAMATE. [Concomitant]
     Active Substance: TOPIRAMATE

REACTIONS (1)
  - Alopecia [Not Recovered/Not Resolved]

NARRATIVE: CASE EVENT DATE: 20151030
